FAERS Safety Report 6486603-1 (Version None)
Quarter: 2009Q4

REPORT INFORMATION
  Report Type: 
  Country: None (occurrence: None)
  Receive Date: 20091210
  Receipt Date: 20090731
  Transmission Date: 20100525
  Serious: No
  Sender: FDA-Public Use
  Company Number: US-AMGEN-KDL358326

PATIENT
  Sex: Female

DRUGS (7)
  1. ENBREL [Suspect]
     Indication: RHEUMATOID ARTHRITIS
     Route: 058
     Dates: start: 19990101
  2. PREDNISONE [Concomitant]
  3. SYNTHROID [Concomitant]
  4. CELEBREX [Concomitant]
  5. ALEVE [Concomitant]
  6. TOPAMAX [Concomitant]
  7. ALLERGY MEDICATION NOS [Concomitant]

REACTIONS (3)
  - INFECTION [None]
  - MIGRAINE [None]
  - SINUSITIS [None]
